FAERS Safety Report 19835353 (Version 1)
Quarter: 2021Q3

REPORT INFORMATION
  Report Type: Spontaneous
  Country: BR (occurrence: BR)
  Receive Date: 20210915
  Receipt Date: 20210915
  Transmission Date: 20211014
  Serious: Yes (Other)
  Sender: FDA-Public Use
  Company Number: BR-VIIV HEALTHCARE LIMITED-BR2021AMR157985

PATIENT
  Age: 46 Year
  Sex: Male
  Weight: 104.5 kg

DRUGS (5)
  1. TENOFOVIR DISOPROXIL FUMARATE. [Suspect]
     Active Substance: TENOFOVIR DISOPROXIL FUMARATE
     Indication: ANTIRETROVIRAL THERAPY
     Dosage: 300 MG, QD
     Dates: start: 20200905
  2. SULFAMETHOXAZOLE + TRIMETHOPRIM [Concomitant]
     Active Substance: SULFAMETHOXAZOLE\TRIMETHOPRIM
     Indication: OPPORTUNISTIC INFECTION PROPHYLAXIS
     Dosage: UNK UNK, QD, 800/160MG
     Dates: end: 202012
  3. TIVICAY [Suspect]
     Active Substance: DOLUTEGRAVIR SODIUM
     Indication: ANTIRETROVIRAL THERAPY
     Dosage: 50 MG, QD
     Dates: start: 20200905, end: 20210430
  4. BETAMETHASONE + CALCIPOTRIOL [Concomitant]
     Indication: PSORIASIS
     Dosage: UNK
  5. LAMIVUDINE HIV [Suspect]
     Active Substance: LAMIVUDINE
     Indication: ANTIRETROVIRAL THERAPY
     Dosage: 300 MG, QD
     Dates: start: 20200905

REACTIONS (3)
  - Blood HIV RNA increased [Recovering/Resolving]
  - Therapeutic product effect incomplete [Unknown]
  - Viral mutation identified [Unknown]

NARRATIVE: CASE EVENT DATE: 20210322
